FAERS Safety Report 8701465 (Version 3)
Quarter: 2012Q4

REPORT INFORMATION
  Report Type: 
  Country: US (occurrence: US)
  Receive Date: 20120802
  Receipt Date: 20121022
  Transmission Date: 20130627
  Serious: Yes (Hospitalization)
  Sender: FDA-Public Use
  Company Number: US-GILEAD-2012-0058842

PATIENT
  Age: 75 Year
  Sex: Female

DRUGS (4)
  1. LETAIRIS [Suspect]
     Indication: PULMONARY HYPERTENSION
     Dosage: 10 mg, UNK
     Route: 048
     Dates: start: 20110912, end: 20120703
  2. LETAIRIS [Suspect]
     Indication: ATRIAL SEPTAL DEFECT
  3. TYVASO [Suspect]
     Indication: PORTAL HYPERTENSION
     Dosage: UNK
     Dates: start: 20120612
  4. COUMADIN                           /00014802/ [Concomitant]

REACTIONS (2)
  - Respiratory tract infection [Recovered/Resolved]
  - Dyspnoea [Not Recovered/Not Resolved]
